FAERS Safety Report 7042760-X (Version None)
Quarter: 2010Q4

REPORT INFORMATION
  Report Type: 
  Country: None (occurrence: None)
  Receive Date: 20101013
  Receipt Date: 20100217
  Transmission Date: 20110411
  Serious: No
  Sender: FDA-Public Use
  Company Number: US-ASTRAZENECA-2010SE07001

PATIENT
  Age: 48 Year
  Sex: Male
  Weight: 77.1 kg

DRUGS (5)
  1. SYMBICORT [Suspect]
     Indication: ASTHMA
     Dosage: 2 PUFFS BID
     Route: 055
  2. DIOVAN [Concomitant]
  3. NORVAR [Concomitant]
     Indication: HIV INFECTION
  4. RAYATAZ [Concomitant]
     Indication: HIV INFECTION
  5. TRIBATTA [Concomitant]
     Indication: HIV INFECTION

REACTIONS (3)
  - ERYTHEMA [None]
  - INCORRECT DOSE ADMINISTERED [None]
  - THROAT TIGHTNESS [None]
